FAERS Safety Report 18597701 (Version 1)
Quarter: 2020Q4

REPORT INFORMATION
  Report Type: Other
  Country: SA (occurrence: SA)
  Receive Date: 20201210
  Receipt Date: 20201210
  Transmission Date: 20210114
  Serious: Yes (Other)
  Sender: FDA-Public Use
  Company Number: SA-ENCUBE-000024

PATIENT
  Age: 34 Year
  Sex: Male

DRUGS (10)
  1. AZITHROMYCIN ANHYDROUS. [Suspect]
     Active Substance: AZITHROMYCIN ANHYDROUS
     Indication: COVID-19
  2. LOPINAVIR [Suspect]
     Active Substance: LOPINAVIR
     Indication: COVID-19
  3. PREDNISOLONE. [Suspect]
     Active Substance: PREDNISOLONE
     Indication: COVID-19
  4. CEFTAZIDIME. [Suspect]
     Active Substance: CEFTAZIDIME
     Indication: COVID-19
  5. OSELTAMIVIR [Suspect]
     Active Substance: OSELTAMIVIR
     Indication: COVID-19
  6. CEFTRIAXONE. [Suspect]
     Active Substance: CEFTRIAXONE
     Indication: COVID-19
  7. CLINDAMYCIN. [Suspect]
     Active Substance: CLINDAMYCIN
     Indication: COVID-19
  8. RIBAVIRIN. [Suspect]
     Active Substance: RIBAVIRIN
     Indication: COVID-19
  9. HYDROXYCHLOROQUINE [Suspect]
     Active Substance: HYDROXYCHLOROQUINE
     Indication: COVID-19
     Dosage: 200 MG TABLET ORALLY EVERY 12 HOURS
     Route: 048
     Dates: start: 20200605
  10. INTERFERON BETA NOS [Suspect]
     Active Substance: INTERFERON BETA
     Indication: COVID-19

REACTIONS (2)
  - Acute generalised exanthematous pustulosis [Not Recovered/Not Resolved]
  - Off label use [Unknown]

NARRATIVE: CASE EVENT DATE: 20200627
